FAERS Safety Report 7982548-6 (Version None)
Quarter: 2011Q4

REPORT INFORMATION
  Report Type: 
  Country: None (occurrence: None)
  Receive Date: 20111215
  Receipt Date: 20111205
  Transmission Date: 20120403
  Serious: Yes (Other)
  Sender: FDA-Public Use
  Company Number: UY-ROCHE-1020433

PATIENT

DRUGS (6)
  1. PREDNISONE [Suspect]
     Indication: IMMUNOSUPPRESSION
     Route: 065
  2. AZATHIOPRINE [Suspect]
     Indication: IMMUNOSUPPRESSION
     Route: 065
  3. TACROLIMUS [Suspect]
     Indication: IMMUNOSUPPRESSION
     Route: 065
  4. EVEROLIMUS [Suspect]
     Indication: IMMUNOSUPPRESSION
     Route: 065
  5. MYCOPHENOLATE MOFETIL (CELLCEPT) [Suspect]
     Indication: IMMUNOSUPPRESSION
     Route: 065
  6. CYCLOSPORINE [Suspect]
     Indication: IMMUNOSUPPRESSION
     Route: 065

REACTIONS (8)
  - CHLOASMA [None]
  - FUNGAL INFECTION [None]
  - VIRAL INFECTION [None]
  - ACNE [None]
  - XEROSIS [None]
  - PRURIGO [None]
  - HYPERTRICHOSIS [None]
  - HIRSUTISM [None]
